FAERS Safety Report 4950256-1 (Version None)
Quarter: 2006Q1

REPORT INFORMATION
  Report Type: 
  Country: None (occurrence: None)
  Receive Date: 20060315
  Receipt Date: 20060228
  Transmission Date: 20060701
  Serious: Yes (Hospitalization, Disabling, Other)
  Sender: FDA-Public Use
  Company Number: GXKR2006AT01226

PATIENT
  Age: 51 Year
  Sex: Male

DRUGS (2)
  1. ASPIRIN [Suspect]
     Dosage: 150 MG, QD
  2. CLOPIDOGREL BISULFATE [Suspect]
     Dosage: 75 MG, QD

REACTIONS (8)
  - ANAL SPHINCTER ATONY [None]
  - BACK PAIN [None]
  - BLADDER SPHINCTER ATONY [None]
  - HYPOAESTHESIA [None]
  - PARAPLEGIA [None]
  - POST PROCEDURAL COMPLICATION [None]
  - SUBARACHNOID HAEMORRHAGE [None]
  - URINARY RETENTION [None]
